FAERS Safety Report 25117087 (Version 1)
Quarter: 2025Q1

REPORT INFORMATION
  Report Type: Spontaneous
  Country: US (occurrence: US)
  Receive Date: 20250325
  Receipt Date: 20250325
  Transmission Date: 20250409
  Serious: No
  Sender: BIOGEN
  Company Number: US-BBU-2025000008

PATIENT
  Age: 48 Year
  Sex: Male

DRUGS (3)
  1. TOCILIZUMAB [Suspect]
     Active Substance: TOCILIZUMAB
     Indication: Craniopharyngioma
     Dosage: WITH BEVACIZUMAB
  2. TOCILIZUMAB [Suspect]
     Active Substance: TOCILIZUMAB
     Indication: Craniopharyngioma
     Dosage: IN THE SAME DAY, IN COMBINATION WITH BEVACIZUMAB
  3. BEVACIZUMAB [Suspect]
     Active Substance: BEVACIZUMAB
     Indication: Craniopharyngioma

REACTIONS (2)
  - Fatigue [Unknown]
  - Off label use [Unknown]
